FAERS Safety Report 18569717 (Version 1)
Quarter: 2020Q4

REPORT INFORMATION
  Report Type: Spontaneous
  Country: DK (occurrence: DK)
  Receive Date: 20201202
  Receipt Date: 20201202
  Transmission Date: 20210114
  Serious: Yes (Hospitalization, Other)
  Sender: FDA-Public Use
  Company Number: DK-PFIZER INC-2020470235

PATIENT
  Age: 73 Year
  Sex: Female

DRUGS (6)
  1. CALCIUM + VIT D [Concomitant]
     Active Substance: CALCIUM\VITAMIN D
     Indication: VITAMIN SUPPLEMENTATION
     Dosage: 1 DF, 1X/DAY
     Route: 048
     Dates: start: 20190815
  2. DERMOVATE [Concomitant]
     Active Substance: CLOBETASOL
     Indication: PSORIASIS
     Dosage: 2 DF, 1X/DAY
     Dates: start: 20190927
  3. PANODIL [Concomitant]
     Active Substance: ACETAMINOPHEN
     Indication: PAIN
     Dosage: 3990 MG, 1X/DAY
     Route: 048
     Dates: start: 20200228
  4. DENOSUMAB [Concomitant]
     Active Substance: DENOSUMAB
     Indication: OSTEOPETROSIS
     Dosage: 1.7 ML
     Dates: start: 20200206
  5. ASACOL [Concomitant]
     Active Substance: MESALAMINE
     Indication: COLITIS ULCERATIVE
     Dosage: 2400 MG, 1X/DAY
     Route: 048
     Dates: start: 20190928
  6. IBRANCE [Suspect]
     Active Substance: PALBOCICLIB
     Indication: BREAST CANCER FEMALE
     Dosage: 125MG, CYCLIC (ONCE DAILY FOR 21 DAYS THAN 7 DAYS)
     Route: 048
     Dates: start: 20200206, end: 202010

REACTIONS (5)
  - Dyspnoea [Unknown]
  - Cardiac failure [Unknown]
  - Tachycardia [Unknown]
  - Bundle branch block left [Unknown]
  - Cough [Unknown]

NARRATIVE: CASE EVENT DATE: 202010
